FAERS Safety Report 5291433-2 (Version None)
Quarter: 2007Q2

REPORT INFORMATION
  Report Type: 
  Country: None (occurrence: None)
  Receive Date: 20070402
  Receipt Date: 20070316
  Transmission Date: 20071010
  Serious: Yes (Other)
  Sender: FDA-Public Use
  Company Number: GXKR2007KR02668

PATIENT
  Age: 78 Year
  Sex: Female

DRUGS (2)
  1. DEXAMETHASONE [Suspect]
     Dosage: 2 MG/0.5 ML, INTRAOCULAR
     Route: 031
  2. GENTAMICIN [Suspect]
     Dosage: 20 MG/0.5 ML, INTRAOCULAR
     Route: 031

REACTIONS (8)
  - CORNEAL DISORDER [None]
  - CORNEAL OEDEMA [None]
  - EYE INJURY [None]
  - INCORRECT ROUTE OF DRUG ADMINISTRATION [None]
  - SENSATION OF FOREIGN BODY [None]
  - VISION BLURRED [None]
  - VISUAL ACUITY REDUCED [None]
  - WRONG TECHNIQUE IN DRUG USAGE PROCESS [None]
